FAERS Safety Report 12166367 (Version 1)
Quarter: 2016Q1

REPORT INFORMATION
  Report Type: Spontaneous
  Country: BR (occurrence: BR)
  Receive Date: 20160309
  Receipt Date: 20160309
  Transmission Date: 20160526
  Serious: Yes (Other)
  Sender: FDA-Public Use
  Company Number: BR-AMGEN-BRASP2016014814

PATIENT
  Age: 50 Year
  Sex: Female

DRUGS (5)
  1. ESCITALOPRAM [Concomitant]
     Active Substance: ESCITALOPRAM OXALATE
  2. ENBREL [Suspect]
     Active Substance: ETANERCEPT
     Indication: PSORIATIC ARTHROPATHY
     Dosage: 50 MG, ONCE WEEKLY
     Route: 065
     Dates: end: 20160116
  3. RIVOTRIL [Concomitant]
     Active Substance: CLONAZEPAM
     Dosage: 2 MG, UNK
  4. METHOTREXATE SODIUM. [Suspect]
     Active Substance: METHOTREXATE SODIUM
     Indication: PRODUCT USED FOR UNKNOWN INDICATION
     Dosage: 4 TO 6 TABLETS, UNSPEFICIED FREQUENCY
     Route: 065
     Dates: start: 2016
  5. FOLIC ACID. [Concomitant]
     Active Substance: FOLIC ACID
     Dosage: UNK
     Dates: start: 2016

REACTIONS (10)
  - Drug ineffective [Unknown]
  - Alopecia [Unknown]
  - Gait disturbance [Not Recovered/Not Resolved]
  - Joint stiffness [Unknown]
  - Back pain [Not Recovered/Not Resolved]
  - Vomiting [Unknown]
  - Psoriatic arthropathy [Not Recovered/Not Resolved]
  - Disease progression [Not Recovered/Not Resolved]
  - Mouth injury [Unknown]
  - Asthenia [Not Recovered/Not Resolved]

NARRATIVE: CASE EVENT DATE: 2016
